FAERS Safety Report 6706053-X (Version None)
Quarter: 2010Q2

REPORT INFORMATION
  Report Type: 
  Country: None (occurrence: None)
  Receive Date: 20100423
  Receipt Date: 20091228
  Transmission Date: 20101027
  Serious: No
  Sender: FDA-Public Use
  Company Number: ALL1-2009-04178

PATIENT
  Age: 13 Year
  Sex: Female
  Weight: 40.8 kg

DRUGS (2)
  1. VYVANSE [Suspect]
     Indication: ATTENTION DEFICIT/HYPERACTIVITY DISORDER
     Dosage: 20 MG, 1X/DAY:QD, ORAL ; 40 MG, 1X/DAY:QD ADMINISTERED AS TWO 20 MG CAPSULES DAILY, ORAL
     Route: 048
     Dates: start: 20091219, end: 20091201
  2. VYVANSE [Suspect]
     Indication: ATTENTION DEFICIT/HYPERACTIVITY DISORDER
     Dosage: 20 MG, 1X/DAY:QD, ORAL ; 40 MG, 1X/DAY:QD ADMINISTERED AS TWO 20 MG CAPSULES DAILY, ORAL
     Route: 048
     Dates: start: 20091201

REACTIONS (4)
  - DISTURBANCE IN ATTENTION [None]
  - DRUG EFFECT DELAYED [None]
  - MALAISE [None]
  - OFF LABEL USE [None]
